FAERS Safety Report 8116374-4 (Version None)
Quarter: 2012Q1

REPORT INFORMATION
  Report Type: 
  Country: None (occurrence: None)
  Receive Date: 20120206
  Receipt Date: 20111226
  Transmission Date: 20120608
  Serious: Yes (Hospitalization)
  Sender: FDA-Public Use
  Company Number: JP-GLAXOSMITHKLINE-B0771979A

PATIENT
  Sex: Male

DRUGS (4)
  1. LAMICTAL [Suspect]
     Route: 048
     Dates: start: 20111216, end: 20111218
  2. LAMICTAL [Suspect]
     Indication: BIPOLAR DISORDER
     Dosage: 25MG PER DAY
     Route: 048
     Dates: start: 20111118, end: 20111201
  3. LITHIUM CARBONATE [Concomitant]
     Route: 048
  4. LAMICTAL [Suspect]
     Dosage: 50MG PER DAY
     Route: 048
     Dates: start: 20111202, end: 20111215

REACTIONS (10)
  - STEVENS-JOHNSON SYNDROME [None]
  - ERYTHEMA [None]
  - WHITE BLOOD CELL COUNT INCREASED [None]
  - C-REACTIVE PROTEIN INCREASED [None]
  - RASH [None]
  - ERYTHEMA MULTIFORME [None]
  - RASH PAPULAR [None]
  - PYREXIA [None]
  - RASH PUSTULAR [None]
  - CONJUNCTIVAL HYPERAEMIA [None]
